FAERS Safety Report 6574729-3 (Version None)
Quarter: 2010Q1

REPORT INFORMATION
  Report Type: 
  Country: None (occurrence: None)
  Receive Date: 20100209
  Receipt Date: 20100127
  Transmission Date: 20100710
  Serious: Yes (Other)
  Sender: FDA-Public Use
  Company Number: PHHY2010FR04532

PATIENT
  Sex: Male
  Weight: 71 kg

DRUGS (2)
  1. AFINITOR [Suspect]
     Indication: RENAL CANCER
     Dosage: 10 MG, DAILY
     Dates: start: 20091120, end: 20100121
  2. APROVEL [Concomitant]
     Indication: RENAL PAIN
     Dosage: 150, UNK
     Dates: start: 20091120

REACTIONS (2)
  - BLOOD CREATININE INCREASED [None]
  - PROTEINURIA [None]
